FAERS Safety Report 22954802 (Version 5)
Quarter: 2024Q4

REPORT INFORMATION
  Report Type: Spontaneous
  Country: IN (occurrence: IN)
  Receive Date: 20230918
  Receipt Date: 20241113
  Transmission Date: 20250115
  Serious: Yes (Hospitalization, Other)
  Sender: PFIZER
  Company Number: IN-PFIZER INC-PV202200078710

PATIENT
  Age: 72 Year
  Sex: Female

DRUGS (8)
  1. PALBOCICLIB [Suspect]
     Active Substance: PALBOCICLIB
     Indication: Breast cancer
     Dosage: 125 MG, 1X/DAY
     Route: 048
     Dates: start: 20220219
  2. PALBOCICLIB [Suspect]
     Active Substance: PALBOCICLIB
     Dosage: 125 MG
     Route: 048
     Dates: start: 20220419
  3. PALBOCICLIB [Suspect]
     Active Substance: PALBOCICLIB
     Dosage: 100 MG, 1X/DAY
     Route: 048
     Dates: start: 20230620
  4. PALBOCICLIB [Suspect]
     Active Substance: PALBOCICLIB
     Dosage: 100 MG
     Route: 048
     Dates: end: 20230626
  5. PALBOCICLIB [Suspect]
     Active Substance: PALBOCICLIB
     Dosage: 100 MG, 21 DAYS EVERY 28 DAYS
  6. PALBOCICLIB [Suspect]
     Active Substance: PALBOCICLIB
     Dosage: 125 MG, 1X/DAY
     Route: 048
     Dates: start: 20240911
  7. LETROZOLE [Concomitant]
     Active Substance: LETROZOLE
     Dosage: 2.5 DAILY IN THE MORNING (AS REPORTED)
  8. CALCIUM CARBONATE\CHOLECALCIFEROL [Concomitant]
     Active Substance: CALCIUM CARBONATE\CHOLECALCIFEROL
     Dosage: UNK, DAILY IN THE MORNING

REACTIONS (17)
  - COVID-19 [Unknown]
  - Acute kidney injury [Unknown]
  - Mental impairment [Unknown]
  - Neoplasm progression [Unknown]
  - General physical health deterioration [Recovered/Resolved]
  - Blood test abnormal [Unknown]
  - Pyrexia [Recovered/Resolved]
  - Asthenia [Unknown]
  - Decreased appetite [Unknown]
  - Blood creatinine increased [Unknown]
  - Monocyte percentage increased [Unknown]
  - Lymphocyte percentage increased [Unknown]
  - Neutrophil percentage decreased [Unknown]
  - Haemoglobin decreased [Unknown]
  - Red blood cell count decreased [Unknown]
  - White blood cell count decreased [Unknown]
  - Pain in extremity [Unknown]

NARRATIVE: CASE EVENT DATE: 20240304
